FAERS Safety Report 19405912 (Version 2)
Quarter: 2021Q3

REPORT INFORMATION
  Report Type: Spontaneous
  Country: AU (occurrence: AU)
  Receive Date: 20210611
  Receipt Date: 20210706
  Transmission Date: 20211014
  Serious: No
  Sender: FDA-Public Use
  Company Number: AU-ALSI-2021000163

PATIENT
  Sex: Male

DRUGS (2)
  1. NITROUS OXIDE. [Suspect]
     Active Substance: NITROUS OXIDE
     Indication: ANALGESIC THERAPY
     Route: 055
  2. OXYGEN. [Concomitant]
     Active Substance: OXYGEN
     Route: 055

REACTIONS (1)
  - Dissociative disorder [Recovered/Resolved]
